FAERS Safety Report 21084598 (Version 1)
Quarter: 2022Q3

REPORT INFORMATION
  Report Type: Spontaneous
  Country: US (occurrence: US)
  Receive Date: 20220714
  Receipt Date: 20220714
  Transmission Date: 20221027
  Serious: No
  Sender: FDA-Public Use
  Company Number: US-JAZZ-2022-US-021158

PATIENT
  Sex: Male
  Weight: 64.863 kg

DRUGS (2)
  1. EPIDIOLEX [Suspect]
     Active Substance: CANNABIDIOL
     Indication: Partial seizures
     Dosage: 8 MILLILITER, BID
     Route: 048
     Dates: start: 20211203
  2. EPIDIOLEX [Suspect]
     Active Substance: CANNABIDIOL
     Indication: Epilepsy

REACTIONS (4)
  - Gait disturbance [Unknown]
  - Hypotonia [Unknown]
  - Peripheral swelling [Unknown]
  - Drug ineffective [Unknown]
